FAERS Safety Report 5519125-2 (Version None)
Quarter: 2007Q4

REPORT INFORMATION
  Report Type: 
  Country: None (occurrence: None)
  Receive Date: 20071114
  Receipt Date: 20071114
  Transmission Date: 20080405
  Serious: No
  Sender: FDA-Public Use
  Company Number: None

PATIENT
  Age: 40 Year
  Sex: Female
  Weight: 63.5036 kg

DRUGS (1)
  1. CREST PROHEALTH TOOTHPASTE [Suspect]
     Dosage: STANDARD TOOTHBRUSH AMOUNT  2-4 TIMES PER DAY

REACTIONS (1)
  - ORAL DISORDER [None]
